FAERS Safety Report 5211572-1 (Version None)
Quarter: 2007Q1

REPORT INFORMATION
  Report Type: 
  Country: None (occurrence: None)
  Receive Date: 20070116
  Receipt Date: 20070116
  Transmission Date: 20070707
  Serious: Yes (Other)
  Sender: FDA-Public Use
  Company Number: None

PATIENT
  Age: 71 Year
  Sex: Male

DRUGS (1)
  1. ISOVUE-370 [Suspect]
     Indication: ANGIOGRAM
     Dosage: 40 ML ONCE IV
     Route: 042
     Dates: start: 20061024

REACTIONS (2)
  - PRURITUS [None]
  - URTICARIA [None]
